FAERS Safety Report 18256320 (Version 1)
Quarter: 2020Q3

REPORT INFORMATION
  Report Type: Spontaneous
  Country: US (occurrence: US)
  Receive Date: 20200910
  Receipt Date: 20200910
  Transmission Date: 20201103
  Serious: Yes (Death)
  Sender: FDA-Public Use
  Company Number: None

PATIENT
  Age: 82 Year
  Sex: Male
  Weight: 51 kg

DRUGS (1)
  1. REMDESIVIR. [Suspect]
     Active Substance: REMDESIVIR
     Dates: start: 20200823, end: 20200827

REACTIONS (4)
  - Dysphagia [None]
  - SARS-CoV-2 antibody test negative [None]
  - Cardio-respiratory arrest [None]
  - Treatment noncompliance [None]

NARRATIVE: CASE EVENT DATE: 20200909
